FAERS Safety Report 17007478 (Version 3)
Quarter: 2020Q1

REPORT INFORMATION
  Report Type: Report from Study
  Country: US (occurrence: US)
  Receive Date: 20191108
  Receipt Date: 20200309
  Transmission Date: 20200409
  Serious: Yes (Death, Hospitalization)
  Sender: FDA-Public Use
  Company Number: US-ROCHE-2456294

PATIENT
  Age: 80 Year
  Sex: Female

DRUGS (1)
  1. ZELBORAF [Suspect]
     Active Substance: VEMURAFENIB
     Indication: RECTOSIGMOID CANCER
     Dosage: TAKE 2 TABLET(S) BY MOUTH TWICE A DAY
     Route: 048

REACTIONS (5)
  - Large intestinal haemorrhage [Unknown]
  - Thrombosis [Unknown]
  - Death [Fatal]
  - Intentional product use issue [Unknown]
  - Off label use [Unknown]

NARRATIVE: CASE EVENT DATE: 20191119
